FAERS Safety Report 9108004 (Version 1)
Quarter: 2013Q1

REPORT INFORMATION
  Report Type: Spontaneous
  Country: US (occurrence: US)
  Receive Date: 20130221
  Receipt Date: 20130221
  Transmission Date: 20140127
  Serious: No
  Sender: FDA-Public Use
  Company Number: US-BIOGENIDEC-2013BI014426

PATIENT
  Age: 28 Year
  Sex: Male

DRUGS (3)
  1. TYSABRI [Suspect]
     Indication: MULTIPLE SCLEROSIS
     Route: 042
     Dates: start: 20120808
  2. DEPRESSION MEDICATION [Concomitant]
     Indication: SUICIDAL IDEATION
  3. DEPRESSION MEDICATION [Concomitant]
     Indication: DEPRESSION

REACTIONS (2)
  - Nervousness [Recovered/Resolved]
  - Insomnia [Recovered/Resolved]
